FAERS Safety Report 6233783-9 (Version None)
Quarter: 2009Q2

REPORT INFORMATION
  Report Type: 
  Country: None (occurrence: None)
  Receive Date: 20090616
  Receipt Date: 20090616
  Transmission Date: 20091009
  Serious: Yes (Other)
  Sender: FDA-Public Use
  Company Number: None

PATIENT
  Age: 35 Year
  Sex: Female
  Weight: 70 kg

DRUGS (9)
  1. KALETRA [Suspect]
     Indication: HIV INFECTION
     Dosage: 500 MG BD ORAL
     Route: 048
     Dates: start: 20070129
  2. EMTRIVA [Suspect]
     Indication: HIV INFECTION
     Dosage: 200 MG OD ORAL
     Route: 048
     Dates: start: 20070129
  3. VIREAD [Suspect]
     Indication: HIV INFECTION
     Dosage: 300 MG OD ORAL
     Route: 048
     Dates: start: 20070129, end: 20090401
  4. RETROVIR [Suspect]
     Indication: HIV INFECTION
     Dosage: 300 MG BD ORAL
     Route: 048
     Dates: start: 20090402
  5. MULTIVITIMIN [Concomitant]
  6. BACTRIM [Concomitant]
  7. FERROUS SULFATE TAB [Concomitant]
  8. FOLIC ACID [Concomitant]
  9. AMILORIDE HCL AND HYDROCHLOROTHIAZIDE [Concomitant]

REACTIONS (10)
  - ABDOMINAL PAIN LOWER [None]
  - ABORTION COMPLETE [None]
  - BACK PAIN [None]
  - BLOOD PRESSURE SYSTOLIC INCREASED [None]
  - DRUG EXPOSURE DURING PREGNANCY [None]
  - DYSPNOEA [None]
  - HAEMOGLOBIN DECREASED [None]
  - METRORRHAGIA [None]
  - TREATMENT NONCOMPLIANCE [None]
  - VAGINAL HAEMORRHAGE [None]
